FAERS Safety Report 8832863 (Version 1)
Quarter: 2012Q4

REPORT INFORMATION
  Report Type: 
  Country: US (occurrence: None)
  Receive Date: 20121009
  Receipt Date: 20121009
  Transmission Date: 20130627
  Serious: No
  Sender: FDA-Public Use
  Company Number: None

PATIENT
  Sex: Male
  Weight: 88.4 kg

DRUGS (6)
  1. CYCLOPHOSPHAMIDE [Suspect]
  2. CYTARABINE [Suspect]
  3. MERCAPTOPURINE [Suspect]
  4. METHOTREXATE [Suspect]
  5. PEG-L-ASPARAGINASE [Suspect]
  6. VINCRISTINE [Suspect]

REACTIONS (2)
  - White blood cell count abnormal [None]
  - Platelet count abnormal [None]
